FAERS Safety Report 10912653 (Version 2)
Quarter: 2015Q2

REPORT INFORMATION
  Report Type: Spontaneous
  Country: GB (occurrence: None)
  Receive Date: 20150310
  Receipt Date: 20150515
  Transmission Date: 20150821
  Serious: Yes (Life-Threatening)
  Sender: FDA-Public Use
  Company Number: 20150574

PATIENT
  Age: 53 Year
  Sex: Female

DRUGS (8)
  1. TROSPIUM CHLORIDE. [Concomitant]
     Active Substance: TROSPIUM CHLORIDE
  2. METHOTREXATE (METHOTREXATE) [Suspect]
     Active Substance: METHOTREXATE
     Indication: RHEUMATOID ARTHRITIS
     Route: 051
     Dates: start: 201005
  3. OMEPRAZOLE. [Concomitant]
     Active Substance: OMEPRAZOLE
  4. PERINDOPRIL ERBUMINE. [Concomitant]
     Active Substance: PERINDOPRIL ERBUMINE
  5. PLAQUENIL/HYDROXYCHLOROQUINE SULPHATE [Concomitant]
  6. BENDROFLUMETHIAZIDE [Concomitant]
     Active Substance: BENDROFLUMETHIAZIDE
  7. CO-CODAMOL/CODEINE PHOSPHATE, PARACETAMOL [Concomitant]
  8. FOLIC ACID. [Concomitant]
     Active Substance: FOLIC ACID

REACTIONS (8)
  - Metastases to central nervous system [None]
  - Malignant melanoma stage IV [None]
  - Metastatic neoplasm [None]
  - Lymphadenopathy [None]
  - Neurological symptom [None]
  - Melanoma recurrent [None]
  - Metastases to lung [None]
  - Metastases to liver [None]

NARRATIVE: CASE EVENT DATE: 201206
